FAERS Safety Report 23959850 (Version 2)
Quarter: 2024Q2

REPORT INFORMATION
  Report Type: Spontaneous
  Country: US (occurrence: US)
  Receive Date: 20240611
  Receipt Date: 20240612
  Transmission Date: 20240716
  Serious: Yes (Hospitalization)
  Sender: FDA-Public Use
  Company Number: US-JNJFOC-20240601154

PATIENT
  Age: 46 Year
  Sex: Female

DRUGS (5)
  1. SPRAVATO [Suspect]
     Active Substance: ESKETAMINE
     Indication: Depression
     Dosage: ^56 MG, 1 TOTAL DOSE^
     Dates: start: 20230622, end: 20230622
  2. SPRAVATO [Suspect]
     Active Substance: ESKETAMINE
     Dosage: ^84 MG, 31 TOTAL DOSE^
     Dates: start: 20230626, end: 20231012
  3. SPRAVATO [Suspect]
     Active Substance: ESKETAMINE
     Dosage: ^56 MG, 1 TOTAL DOSE^
     Dates: start: 20231016, end: 20231016
  4. SPRAVATO [Suspect]
     Active Substance: ESKETAMINE
     Dosage: ^84 MG, 55 TOTAL DOSE^
     Dates: start: 20231019, end: 20240524
  5. KETAMINE [Suspect]
     Active Substance: KETAMINE
     Indication: Pain
     Dosage: 10.8 KETAMINE
     Route: 065

REACTIONS (3)
  - Trichotillomania [Unknown]
  - Abnormal behaviour [Unknown]
  - Blood pressure increased [Unknown]

NARRATIVE: CASE EVENT DATE: 20240531
